FAERS Safety Report 6496573-8 (Version None)
Quarter: 2009Q4

REPORT INFORMATION
  Report Type: 
  Country: None (occurrence: None)
  Receive Date: 20091210
  Receipt Date: 20091202
  Transmission Date: 20100525
  Serious: Yes (Other)
  Sender: FDA-Public Use
  Company Number: 2009-197846-NL

PATIENT
  Age: 29 Year
  Sex: Female
  Weight: 136.7 kg

DRUGS (8)
  1. IMPLANON [Suspect]
     Indication: CONTRACEPTION
     Dates: start: 20090106, end: 20090601
  2. CLOBAZAM [Concomitant]
  3. CERTRALINE [Concomitant]
  4. DOXYCYCLINE [Concomitant]
  5. TEMAZEPAM [Concomitant]
  6. DIAZEPAM [Concomitant]
  7. VENTOLIN [Concomitant]
  8. CLENIL [Concomitant]

REACTIONS (8)
  - ABORTION SPONTANEOUS [None]
  - BREAST TENDERNESS [None]
  - DRUG EXPOSURE DURING PREGNANCY [None]
  - HAEMORRHAGE [None]
  - MUSCLE SPASMS [None]
  - NAUSEA [None]
  - PREGNANCY [None]
  - PREGNANCY WITH IMPLANT CONTRACEPTIVE [None]
